FAERS Safety Report 19436219 (Version 1)
Quarter: 2021Q2

REPORT INFORMATION
  Report Type: Spontaneous
  Country: US (occurrence: US)
  Receive Date: 20210618
  Receipt Date: 20210618
  Transmission Date: 20210717
  Serious: No
  Sender: FDA-Public Use
  Company Number: US-SA-2021SA190817

PATIENT
  Sex: Female

DRUGS (7)
  1. OTEZLA [Concomitant]
     Active Substance: APREMILAST
  2. ARAVA [Suspect]
     Active Substance: LEFLUNOMIDE
     Indication: PSORIATIC ARTHROPATHY
  3. SULFASALAZINE. [Suspect]
     Active Substance: SULFASALAZINE
  4. COSENTYX [Concomitant]
     Active Substance: SECUKINUMAB
  5. TALTZ [Concomitant]
     Active Substance: IXEKIZUMAB
  6. METHOTREXATE. [Suspect]
     Active Substance: METHOTREXATE
  7. HUMIRA [Concomitant]
     Active Substance: ADALIMUMAB

REACTIONS (2)
  - Treatment failure [Unknown]
  - Drug hypersensitivity [Unknown]
